FAERS Safety Report 8185860-3 (Version None)
Quarter: 2012Q1

REPORT INFORMATION
  Report Type: 
  Country: None (occurrence: None)
  Receive Date: 20120305
  Receipt Date: 20120229
  Transmission Date: 20120608
  Serious: Yes (Death)
  Sender: FDA-Public Use
  Company Number: PL-ASTRAZENECA-2012SE13901

PATIENT
  Age: 26471 Day
  Sex: Male
  Weight: 80 kg

DRUGS (2)
  1. ZOLADEX [Suspect]
     Indication: PROSTATE CANCER
     Route: 058
     Dates: start: 20110301, end: 20110801
  2. APO-FLUTAM [Suspect]
     Indication: PROSTATE CANCER
     Route: 048
     Dates: start: 20110301, end: 20110801

REACTIONS (1)
  - HEPATIC FAILURE [None]
